FAERS Safety Report 5733550-6 (Version None)
Quarter: 2008Q2

REPORT INFORMATION
  Report Type: 
  Country: None (occurrence: None)
  Receive Date: 20080509
  Receipt Date: 20080501
  Transmission Date: 20081010
  Serious: Yes (Death)
  Sender: FDA-Public Use
  Company Number: US-JNJFOC-20080501047

PATIENT
  Age: 78 Year
  Sex: Female

DRUGS (2)
  1. FENTANYL TRANSDERMAL SYSTEM [Suspect]
     Indication: HUMERUS FRACTURE
     Dosage: 2X 12.5UG/HR PATCHES
     Route: 062
  2. DURAGESIC-100 [Suspect]
     Indication: HUMERUS FRACTURE
     Route: 062

REACTIONS (2)
  - DEATH [None]
  - DRUG ADMINISTRATION ERROR [None]
